FAERS Safety Report 7624070-2 (Version None)
Quarter: 2011Q3

REPORT INFORMATION
  Report Type: 
  Country: None (occurrence: None)
  Receive Date: 20110720
  Receipt Date: 20110710
  Transmission Date: 20111222
  Serious: Yes (Hospitalization)
  Sender: FDA-Public Use
  Company Number: PHHY2011IT58691

PATIENT
  Sex: Female

DRUGS (4)
  1. EXJADE [Suspect]
     Indication: IRON OVERLOAD
     Dosage: 500 MG AND 125 MG TABLET, DAILY
     Route: 048
     Dates: start: 20110615, end: 20110627
  2. EXJADE [Suspect]
     Dosage: 500 MG AND 125 MG TABLET, DAILY
     Route: 048
     Dates: start: 20110708
  3. EXJADE [Suspect]
     Indication: THALASSAEMIA BETA
     Dosage: 500 MG AND 125 MG TABLET, DAILY
     Route: 048
     Dates: start: 20100602, end: 20110527
  4. URSOBIL HT [Concomitant]
     Indication: MENINGITIS BACTERIAL
     Dosage: 450 MG, DAILY
     Route: 048
     Dates: start: 20110610, end: 20110708

REACTIONS (5)
  - NEUTROPENIA [None]
  - LEUKOPENIA [None]
  - PYREXIA [None]
  - MASTOIDITIS [None]
  - MENINGITIS BACTERIAL [None]
